FAERS Safety Report 9810750 (Version 5)
Quarter: 2017Q2

REPORT INFORMATION
  Report Type: Spontaneous
  Country: US (occurrence: US)
  Receive Date: 20140110
  Receipt Date: 20170407
  Transmission Date: 20170830
  Serious: Yes (Other)
  Sender: FDA-Public Use
  Company Number: US-SANOFI-AVENTIS-2013SA000895

PATIENT
  Age: 45 Year
  Sex: Male

DRUGS (2)
  1. ASPIRIN. [Concomitant]
     Active Substance: ASPIRIN
     Route: 065
  2. PLAVIX [Suspect]
     Active Substance: CLOPIDOGREL BISULFATE
     Indication: STENT PLACEMENT
     Route: 048
     Dates: start: 20090725, end: 20110118

REACTIONS (9)
  - Insomnia [Unknown]
  - Multiple injuries [Unknown]
  - Subarachnoid haemorrhage [Unknown]
  - Skin discolouration [Recovered/Resolved]
  - Contusion [Recovered/Resolved]
  - Anxiety [Unknown]
  - Amnesia [Unknown]
  - Malaise [Recovered/Resolved]
  - Depression [Unknown]

NARRATIVE: CASE EVENT DATE: 201001
